FAERS Safety Report 22906356 (Version 3)
Quarter: 2023Q4

REPORT INFORMATION
  Report Type: Spontaneous
  Country: US (occurrence: US)
  Receive Date: 20230905
  Receipt Date: 20231020
  Transmission Date: 20240109
  Serious: Yes (Hospitalization, Other)
  Sender: FDA-Public Use
  Company Number: US-ALEMBIC PHARMACUETICALS LIMITED-2023SCAL000685

PATIENT

DRUGS (10)
  1. DOXEPIN HYDROCHLORIDE [Interacting]
     Active Substance: DOXEPIN HYDROCHLORIDE
     Indication: Insomnia
     Dosage: 75 MG (1.10 MG/ KG)
     Route: 065
  2. DOXEPIN HYDROCHLORIDE [Interacting]
     Active Substance: DOXEPIN HYDROCHLORIDE
     Dosage: 150 MG NIGHTLY (2.21 MG/KG)
     Route: 065
  3. DOXEPIN HYDROCHLORIDE [Interacting]
     Active Substance: DOXEPIN HYDROCHLORIDE
     Dosage: 200 MG NIGHTLY (2.94 MG/KG)
     Route: 065
  4. DOXEPIN HYDROCHLORIDE [Interacting]
     Active Substance: DOXEPIN HYDROCHLORIDE
     Dosage: 300 MILLIGRAM, QD, NIGHTLY
     Route: 065
  5. LEVETIRACETAM [Interacting]
     Active Substance: LEVETIRACETAM
     Indication: Epilepsy
     Dosage: 1000 MILLIGRAM, BID
     Route: 065
  6. CLOBAZAM [Interacting]
     Active Substance: CLOBAZAM
     Indication: Seizure
     Dosage: 10 MILLIGRAM, BID
     Route: 065
  7. TOPIRAMATE [Suspect]
     Active Substance: TOPIRAMATE
     Indication: Seizure
     Dosage: 300 MILLIGRAM, QD
     Route: 065
  8. TOPIRAMATE [Suspect]
     Active Substance: TOPIRAMATE
     Dosage: 150 MILLIGRAM, BID
  9. VALPROIC ACID [Interacting]
     Active Substance: VALPROIC ACID
     Indication: Epilepsy
     Dosage: 500 MILLIGRAM, BID
     Route: 065
  10. GUANFACINE [Interacting]
     Active Substance: GUANFACINE
     Indication: Attention deficit hyperactivity disorder
     Dosage: 3 MILLIGRAM, QD
     Route: 065

REACTIONS (23)
  - Toxicity to various agents [Unknown]
  - Dysarthria [Unknown]
  - Fall [Unknown]
  - Slow speech [Unknown]
  - Gait disturbance [Recovering/Resolving]
  - Encephalopathy [Unknown]
  - Neurotoxicity [Recovering/Resolving]
  - Enuresis [Unknown]
  - Staring [Unknown]
  - Drug level increased [Recovering/Resolving]
  - Cognitive disorder [Recovering/Resolving]
  - Electrocardiogram QRS complex prolonged [Recovered/Resolved]
  - Depressed level of consciousness [Unknown]
  - Overdose [Unknown]
  - Seizure [Recovered/Resolved]
  - Generalised tonic-clonic seizure [Recovered/Resolved]
  - Ataxia [Recovered/Resolved]
  - Confusional state [Recovered/Resolved]
  - Drug interaction [Unknown]
  - Drug tolerance increased [Unknown]
  - Drug half-life increased [Unknown]
  - Off label use [Unknown]
  - Drug ineffective [Unknown]
